FAERS Safety Report 10310011 (Version 2)
Quarter: 2014Q3

REPORT INFORMATION
  Report Type: Spontaneous
  Country: DE (occurrence: DE)
  Receive Date: 20140717
  Receipt Date: 20140804
  Transmission Date: 20150326
  Serious: Yes (Other)
  Sender: FDA-Public Use
  Company Number: PHHY2014DE085773

PATIENT
  Sex: Female

DRUGS (1)
  1. GLIVEC [Suspect]
     Active Substance: IMATINIB MESYLATE
     Indication: CHRONIC MYELOID LEUKAEMIA
     Dosage: 400 MG, UNK
     Dates: start: 200512

REACTIONS (6)
  - Haematoma [Not Recovered/Not Resolved]
  - Second primary malignancy [Unknown]
  - Melanoderma [Not Recovered/Not Resolved]
  - Contusion [Not Recovered/Not Resolved]
  - Eye haemorrhage [Unknown]
  - Malignant melanoma [Unknown]
